FAERS Safety Report 25322984 (Version 1)
Quarter: 2025Q2

REPORT INFORMATION
  Report Type: Spontaneous
  Country: US (occurrence: US)
  Receive Date: 20250516
  Receipt Date: 20250516
  Transmission Date: 20250716
  Serious: Yes (Hospitalization)
  Sender: CHEPLAPHARM
  Company Number: US-ASTRAZENECA-202505GLO003516US

PATIENT
  Age: 21 Year
  Sex: Male

DRUGS (1)
  1. QUETIAPINE [Suspect]
     Active Substance: QUETIAPINE

REACTIONS (4)
  - Shock [Recovered/Resolved]
  - Status epilepticus [Recovered/Resolved]
  - Pulseless electrical activity [Recovered/Resolved]
  - Overdose [Recovered/Resolved]
